FAERS Safety Report 6573603-6 (Version None)
Quarter: 2010Q1

REPORT INFORMATION
  Report Type: 
  Country: None (occurrence: None)
  Receive Date: 20100208
  Receipt Date: 20100201
  Transmission Date: 20100710
  Serious: Yes (Death, Hospitalization)
  Sender: FDA-Public Use
  Company Number: US-ROCHE-677613

PATIENT
  Sex: Male
  Weight: 95.3 kg

DRUGS (2)
  1. CAPECITABINE [Suspect]
     Route: 048
     Dates: start: 20091218, end: 20091229
  2. CAPECITABINE [Suspect]
     Route: 048
     Dates: end: 20100114

REACTIONS (2)
  - MALIGNANT NEOPLASM PROGRESSION [None]
  - PAIN MANAGEMENT [None]
